FAERS Safety Report 5006273-9 (Version None)
Quarter: 2006Q2

REPORT INFORMATION
  Report Type: 
  Country: None (occurrence: None)
  Receive Date: 20060519
  Receipt Date: 20060509
  Transmission Date: 20061013
  Serious: Yes (Other)
  Sender: FDA-Public Use
  Company Number: JP-SANOFI-SYNTHELABO-A01200603464

PATIENT
  Age: 36 Year
  Sex: Female

DRUGS (2)
  1. MYSLEE [Suspect]
     Indication: INSOMNIA
     Dosage: 10 MG
     Route: 048
     Dates: start: 20051124, end: 20060201
  2. THYRADIN S [Concomitant]
     Indication: DRUG USE FOR UNKNOWN INDICATION
     Dosage: 50 MCG
     Route: 048
     Dates: start: 20051119

REACTIONS (1)
  - DELIRIUM [None]
